FAERS Safety Report 10073199 (Version 1)
Quarter: 2014Q2

REPORT INFORMATION
  Report Type: Spontaneous
  Country: JP (occurrence: JP)
  Receive Date: 20140411
  Receipt Date: 20140411
  Transmission Date: 20141212
  Serious: Yes (Other)
  Sender: FDA-Public Use
  Company Number: JP-PFIZER INC-2014101087

PATIENT
  Sex: Male

DRUGS (1)
  1. JZOLOFT [Suspect]
     Indication: DEPRESSION
     Dosage: UNK

REACTIONS (1)
  - Brain neoplasm [Unknown]
